FAERS Safety Report 4989117-0 (Version None)
Quarter: 2006Q2

REPORT INFORMATION
  Report Type: 
  Country: None (occurrence: None)
  Receive Date: 20060502
  Receipt Date: 20060421
  Transmission Date: 20061013
  Serious: Yes (Life-Threatening, Hospitalization, Other)
  Sender: FDA-Public Use
  Company Number: US-GILEAD-2006-0009489

PATIENT
  Sex: Male

DRUGS (11)
  1. TRUVADA [Suspect]
     Indication: HIV INFECTION
     Route: 048
     Dates: start: 20050831
  2. KALETRA [Suspect]
     Indication: HIV INFECTION
     Route: 048
     Dates: start: 20050831
  3. SERTRALINE HYDROCHLORIDE [Concomitant]
  4. AZITHROMYCIN [Concomitant]
     Dates: start: 20050722
  5. SALBUTAMOL SULPHATE [Concomitant]
  6. IPRATROPIUM BROMIDE [Concomitant]
  7. DAPSONE [Concomitant]
     Dates: start: 20050706
  8. HYDROXYZINE HYDROCHLORIDE [Concomitant]
     Dates: start: 20050706
  9. PROPRANOLOL HYDROCHLORIDE [Concomitant]
     Dates: start: 20050803
  10. KETOCONAZOLE [Concomitant]
     Dates: start: 20050822
  11. TRIAMCINOLONE [Concomitant]
     Dates: start: 20050822

REACTIONS (3)
  - CHRONIC OBSTRUCTIVE PULMONARY DISEASE [None]
  - CONDITION AGGRAVATED [None]
  - PNEUMONIA [None]
